FAERS Safety Report 7046175-X (Version None)
Quarter: 2010Q4

REPORT INFORMATION
  Report Type: 
  Country: None (occurrence: None)
  Receive Date: 20101014
  Receipt Date: 20101007
  Transmission Date: 20110411
  Serious: Yes (Life-Threatening, Hospitalization, Other)
  Sender: FDA-Public Use
  Company Number: A0878669A

PATIENT
  Age: 42 Year
  Sex: Female
  Weight: 68.2 kg

DRUGS (2)
  1. BEXXAR [Suspect]
     Indication: NON-HODGKIN'S LYMPHOMA
     Route: 042
     Dates: start: 20100201, end: 20100601
  2. NO CONCURRENT MEDICATION [Concomitant]

REACTIONS (4)
  - AMENORRHOEA [None]
  - ENCEPHALITIS [None]
  - HERPES SIMPLEX [None]
  - MENINGITIS [None]
